FAERS Safety Report 4308385-1 (Version None)
Quarter: 2004Q1

REPORT INFORMATION
  Report Type: 
  Country: None (occurrence: None)
  Receive Date: 20040225
  Receipt Date: 20030507
  Transmission Date: 20041129
  Serious: Yes (Hospitalization)
  Sender: FDA-Public Use
  Company Number: WAES 0211USA01493

PATIENT
  Age: 56 Year
  Sex: Male
  Weight: 97.0698 kg

DRUGS (18)
  1. ZOCOR [Suspect]
     Indication: HYPERLIPIDAEMIA
     Dosage: 80 MG/HS/PO
     Route: 048
  2. LANOXIN [Concomitant]
  3. TEGRETOL [Concomitant]
  4. TIAZAC [Concomitant]
  5. ACETAMINOPHEN (+) PROPROXYPHENE [Concomitant]
  6. ALBUTEROL [Concomitant]
  7. ASPIRIN [Concomitant]
  8. DOCUSATE SODIUM [Concomitant]
  9. FUROSEMIDE [Concomitant]
  10. GEMFIBROZIL [Concomitant]
  11. GLIPIZIDE [Concomitant]
  12. LISINOPRIL [Concomitant]
  13. MAGNESIUM OXIDE [Concomitant]
  14. METOPROLOL TARTRATE [Concomitant]
  15. NITROGLYCERIN [Concomitant]
  16. POTASSIUM CHLORIDE [Concomitant]
  17. RANITIDINE [Concomitant]
  18. SPIRONOLACTONE [Concomitant]

REACTIONS (1)
  - RHABDOMYOLYSIS [None]
